FAERS Safety Report 22869885 (Version 3)
Quarter: 2024Q3

REPORT INFORMATION
  Report Type: Report from Study
  Country: IT (occurrence: IT)
  Receive Date: 20230826
  Receipt Date: 20240715
  Transmission Date: 20241017
  Serious: Yes (Other)
  Sender: TEVA
  Company Number: None

PATIENT
  Age: 18 Year
  Sex: Female
  Weight: 43 kg

DRUGS (4)
  1. CISPLATIN [Suspect]
     Active Substance: CISPLATIN
     Indication: Medulloblastoma
     Dosage: CISPLATINO TEVA ITALIA
     Route: 042
     Dates: start: 20230707, end: 20230707
  2. DECAPEPTYL [Concomitant]
     Indication: Product used for unknown indication
     Dosage: 0.1 MG/DAY
     Route: 058
     Dates: start: 20230721, end: 20230721
  3. LOMUSTINE [Suspect]
     Active Substance: LOMUSTINE
     Indication: Medulloblastoma
     Dosage: 80 (2 TABLETS OF 40 MG) MG/DAY
     Route: 048
     Dates: start: 20230707, end: 20230707
  4. VINCRISTINE [Suspect]
     Active Substance: VINCRISTINE
     Indication: Medulloblastoma
     Dosage: VINCRISTINA TEVA ITALY,1.99 MG/DAY ON 07/07/14/21/23
     Route: 042
     Dates: start: 20230707, end: 20230721

REACTIONS (6)
  - Pancytopenia [Not Recovered/Not Resolved]
  - Alopecia [Recovered/Resolved]
  - Pain in extremity [Recovered/Resolved]
  - Constipation [Not Recovered/Not Resolved]
  - Nausea [Recovered/Resolved]
  - Anaemia [Recovered/Resolved]

NARRATIVE: CASE EVENT DATE: 20230721
